FAERS Safety Report 23267256 (Version 1)
Quarter: 2023Q4

REPORT INFORMATION
  Report Type: Spontaneous
  Country: US (occurrence: None)
  Receive Date: 20231204
  Receipt Date: 20231204
  Transmission Date: 20240110
  Serious: Yes (Other)
  Sender: FDA-Public Use
  Company Number: None

PATIENT
  Age: 65 Year
  Sex: Female
  Weight: 75.9 kg

DRUGS (1)
  1. ADUCANUMAB [Suspect]
     Active Substance: ADUCANUMAB
     Dosage: OTHER FREQUENCY : Q 28 DAYS;?
     Route: 041
     Dates: start: 20230117

REACTIONS (2)
  - Suicidal ideation [None]
  - Depression [None]

NARRATIVE: CASE EVENT DATE: 20231128
